FAERS Safety Report 14759728 (Version 2)
Quarter: 2018Q2

REPORT INFORMATION
  Report Type: Report from Study
  Country: JP (occurrence: JP)
  Receive Date: 20180413
  Receipt Date: 20180503
  Transmission Date: 20180711
  Serious: Yes (Other)
  Sender: FDA-Public Use
  Company Number: JP-TEVA-2018-JP-882016

PATIENT
  Age: 45 Year
  Sex: Female

DRUGS (8)
  1. MITOTANE [Suspect]
     Active Substance: MITOTANE
     Indication: ADRENOCORTICAL CARCINOMA
     Dosage: 1 GRAM DAILY; 1 G/DAY DAYS 1-7
     Route: 048
  2. ETOPOSIDE. [Suspect]
     Active Substance: ETOPOSIDE
     Indication: ADRENOCORTICAL CARCINOMA
     Dosage: 100 MG/M2 ON DAYS 5-7 EVERY FOUR WEEKS
     Route: 065
  3. MITOTANE [Suspect]
     Active Substance: MITOTANE
     Indication: ADRENOCORTICAL CARCINOMA
     Dosage: 3 GRAM DAILY; SECOND COURSE OF MITOTANE 3G/DAY FROM DAYS 1-18
     Route: 048
  4. CISPLATIN. [Suspect]
     Active Substance: CISPLATIN
     Indication: ADRENOCORTICAL CARCINOMA
     Dosage: 40 MG/M2 ON DAYS 2 AND 9 EVERY FOUR WEEKS
     Route: 065
  5. MITOTANE [Suspect]
     Active Substance: MITOTANE
     Indication: ADRENOCORTICAL CARCINOMA
     Dosage: 4 GRAM DAILY; SECOND COURSE OF MITOTANE 4G/DAY FROM DAY19 ONWARDS
     Route: 048
  6. MITOTANE [Suspect]
     Active Substance: MITOTANE
     Indication: ADRENOCORTICAL CARCINOMA
     Dosage: 2 GRAM DAILY; 2 G/DAY DAYS 8-21
     Route: 048
  7. DOXORUBICIN [Suspect]
     Active Substance: DOXORUBICIN
     Indication: ADRENOCORTICAL CARCINOMA
     Dosage: 20 MG/M2 ON DAYS 1 AND 8 EVERY FOUR WEEKS
     Route: 065
  8. MITOTANE [Suspect]
     Active Substance: MITOTANE
     Indication: ADRENOCORTICAL CARCINOMA
     Dosage: 3 GRAM DAILY; 3 G/DAY DAYS 22-28
     Route: 048

REACTIONS (5)
  - Febrile neutropenia [Unknown]
  - Anaemia [Unknown]
  - Fatigue [Unknown]
  - Thrombocytopenia [Unknown]
  - Neutropenia [Unknown]
